FAERS Safety Report 8935756 (Version 1)
Quarter: 2012Q4

REPORT INFORMATION
  Report Type: 
  Country: TN (occurrence: TN)
  Receive Date: 20121130
  Receipt Date: 20121130
  Transmission Date: 20130627
  Serious: Yes (Other)
  Sender: FDA-Public Use
  Company Number: TN-GENZYME-THYM-1003508

PATIENT
  Age: 29 Year

DRUGS (8)
  1. THYMOGLOBULINE [Suspect]
     Indication: IMMUNOSUPPRESSION
     Dosage: UNK
     Route: 065
  2. PREDNISOLONE [Suspect]
     Indication: IMMUNOSUPPRESSION
     Dosage: 10 mg/kg, qd  (induction therapy)
     Route: 065
  3. PREDNISOLONE [Suspect]
     Dosage: 10 mg/kg, qd (maintenance therapy)
     Route: 065
  4. PREDNISOLONE [Suspect]
     Dosage: UNK
     Route: 065
  5. MYCOPHENOLATE MOFETIL [Suspect]
     Indication: IMMUNOSUPPRESSION
     Dosage: 2 g, qd
     Route: 065
  6. MYCOPHENOLATE MOFETIL [Suspect]
     Dosage: 1 g, qd
     Route: 065
  7. CALCINEURIN INHIBITORS [Suspect]
     Indication: IMMUNOSUPPRESSION
     Dosage: UNK
     Route: 065
  8. SIROLIMUS [Concomitant]
     Indication: IMMUNOSUPPRESSION
     Dosage: UNK
     Route: 065

REACTIONS (2)
  - Kaposi^s sarcoma [Unknown]
  - Haemodialysis [None]
